FAERS Safety Report 5049802-1 (Version None)
Quarter: 2006Q3

REPORT INFORMATION
  Report Type: 
  Country: None (occurrence: None)
  Receive Date: 20060712
  Receipt Date: 20060705
  Transmission Date: 20061208
  Serious: Yes (Disabling)
  Sender: FDA-Public Use
  Company Number: US-MERCK-0607USA00457

PATIENT
  Sex: Female

DRUGS (3)
  1. VYTORIN [Suspect]
     Indication: HYPERCHOLESTEROLAEMIA
     Route: 048
     Dates: start: 20060628
  2. ASACOL [Concomitant]
     Route: 065
  3. CIPROFLOXACIN [Concomitant]
     Route: 065
     Dates: start: 20060602, end: 20060703

REACTIONS (1)
  - CROHN'S DISEASE [None]
